FAERS Safety Report 8831733 (Version 1)
Quarter: 2012Q4

REPORT INFORMATION
  Report Type: 
  Country: GB (occurrence: GB)
  Receive Date: 20121009
  Receipt Date: 20121009
  Transmission Date: 20130627
  Serious: Yes (Hospitalization)
  Sender: FDA-Public Use
  Company Number: GB-PFIZER INC-2012246940

PATIENT
  Age: 79 Year
  Sex: Male
  Weight: 95.3 kg

DRUGS (4)
  1. IBUPROFEN [Suspect]
     Indication: ARTHRALGIA
     Dosage: 400mg 3x/day
     Route: 048
     Dates: start: 20120507, end: 20120514
  2. QUININE BISULFATE [Concomitant]
     Dosage: 300mg 1x/day
  3. TAMSULOSIN HYDROCHLORIDE [Concomitant]
     Indication: PROSTATIC DISORDER
     Dosage: 400 mg, 1x/day
  4. FLUTICASONE [Concomitant]
     Indication: PROSTATIC DISORDER
     Dosage: 50 mg, 1x/day
     Route: 045

REACTIONS (2)
  - Chest pain [Recovered/Resolved]
  - Vomiting [Recovered/Resolved]
